FAERS Safety Report 8078275-X (Version None)
Quarter: 2012Q1

REPORT INFORMATION
  Report Type: 
  Country: None (occurrence: None)
  Receive Date: 20120123
  Receipt Date: 20120109
  Transmission Date: 20120608
  Serious: Yes (Other)
  Sender: FDA-Public Use
  Company Number: 2012MA000442

PATIENT
  Sex: Male
  Weight: 71.6683 kg

DRUGS (10)
  1. NORVASC [Concomitant]
  2. POTASSIUM [Concomitant]
  3. MUSCLE RELAXERS [Concomitant]
  4. DIGOXIN [Suspect]
     Indication: PRODUCT USED FOR UNKNOWN INDICATION
     Dosage: 0.25 MG;QD;PO
     Route: 048
     Dates: start: 20000509, end: 20070823
  5. CAPTOPRIL [Concomitant]
  6. LASIX [Concomitant]
  7. REFLAFEN [Concomitant]
  8. PEPCID AC [Concomitant]
  9. ZOCOR [Concomitant]
  10. PAIN MEDICATION [Concomitant]

REACTIONS (72)
  - DYSPNOEA [None]
  - CARDIAC FAILURE CONGESTIVE [None]
  - HYPERLIPIDAEMIA [None]
  - ERECTILE DYSFUNCTION [None]
  - COLONIC POLYP [None]
  - CAROTID ARTERY STENOSIS [None]
  - CORONARY ARTERY STENOSIS [None]
  - MITRAL VALVE INCOMPETENCE [None]
  - NAUSEA [None]
  - MICTURITION URGENCY [None]
  - ULCER [None]
  - SWELLING [None]
  - OROPHARYNGEAL PAIN [None]
  - COUGH [None]
  - HYPERTENSION [None]
  - PAIN IN EXTREMITY [None]
  - MYOCARDIAL INFARCTION [None]
  - EYELID DISORDER [None]
  - CHEST DISCOMFORT [None]
  - CORONARY ARTERY DISEASE [None]
  - FATIGUE [None]
  - TRICUSPID VALVE INCOMPETENCE [None]
  - LEFT ATRIAL DILATATION [None]
  - DIARRHOEA [None]
  - DYSURIA [None]
  - INCONTINENCE [None]
  - ANKLE FRACTURE [None]
  - BENIGN PROSTATIC HYPERPLASIA [None]
  - ABDOMINAL DISTENSION [None]
  - SCAR [None]
  - AREFLEXIA [None]
  - THIRST [None]
  - URINARY HESITATION [None]
  - POLLAKIURIA [None]
  - RASH [None]
  - CONVULSION [None]
  - HYPOAESTHESIA [None]
  - SINUS DISORDER [None]
  - BUNDLE BRANCH BLOCK [None]
  - BRONCHITIS [None]
  - ANGINA PECTORIS [None]
  - CARDIAC FAILURE [None]
  - EJECTION FRACTION DECREASED [None]
  - DECREASED APPETITE [None]
  - CONSTIPATION [None]
  - HAEMATURIA [None]
  - CONTUSION [None]
  - BACK PAIN [None]
  - CHEST PAIN [None]
  - INTERVERTEBRAL DISC PROTRUSION [None]
  - DIABETES MELLITUS [None]
  - HEADACHE [None]
  - ISCHAEMIC CARDIOMYOPATHY [None]
  - PRODUCTIVE COUGH [None]
  - PAIN [None]
  - MUSCULOSKELETAL CHEST PAIN [None]
  - ARTHRITIS [None]
  - ARTHROPATHY [None]
  - GASTROOESOPHAGEAL REFLUX DISEASE [None]
  - PROSTATIC SPECIFIC ANTIGEN INCREASED [None]
  - VISUAL IMPAIRMENT [None]
  - ORTHOPNOEA [None]
  - HIATUS HERNIA [None]
  - NOCTURIA [None]
  - BLOOD PRESSURE INADEQUATELY CONTROLLED [None]
  - ANAEMIA [None]
  - BICUSPID AORTIC VALVE [None]
  - TESTICULAR ATROPHY [None]
  - PALPITATIONS [None]
  - VOMITING [None]
  - DEAFNESS [None]
  - JOINT SWELLING [None]
